FAERS Safety Report 13981356 (Version 1)
Quarter: 2017Q3

REPORT INFORMATION
  Report Type: Spontaneous
  Country: US (occurrence: US)
  Receive Date: 20170916
  Receipt Date: 20170916
  Transmission Date: 20171128
  Serious: Yes (Other)
  Sender: FDA-Public Use
  Company Number: None

PATIENT
  Age: 58 Year
  Sex: Female
  Weight: 59.4 kg

DRUGS (11)
  1. CIPROFLAXIN 500 MG [Suspect]
     Active Substance: CIPROFLOXACIN
     Indication: COUGH
     Dosage: ?          QUANTITY:42 TABLET(S);?
     Route: 048
     Dates: start: 20170201, end: 20170222
  2. ASPIRIN. [Concomitant]
     Active Substance: ASPIRIN
  3. SERTRALINE [Concomitant]
     Active Substance: SERTRALINE HYDROCHLORIDE
  4. CIPROFLAXIN 500 MG [Suspect]
     Active Substance: CIPROFLOXACIN
     Indication: BRONCHITIS
     Dosage: ?          QUANTITY:42 TABLET(S);?
     Route: 048
     Dates: start: 20170201, end: 20170222
  5. LEVOFLAXIN 750 [Suspect]
     Active Substance: LEVOFLOXACIN
     Indication: BRONCHITIS
     Route: 048
     Dates: start: 20170201, end: 20170222
  6. LEVOFLAXIN 750 [Suspect]
     Active Substance: LEVOFLOXACIN
     Indication: COUGH
     Route: 048
     Dates: start: 20170201, end: 20170222
  7. TRAZODONE [Concomitant]
     Active Substance: TRAZODONE HYDROCHLORIDE
  8. OMEPRAZOLE. [Concomitant]
     Active Substance: OMEPRAZOLE
  9. BYSTOLIC [Concomitant]
     Active Substance: NEBIVOLOL HYDROCHLORIDE
  10. LYRICA [Concomitant]
     Active Substance: PREGABALIN
  11. GLIMEPIRIDE. [Concomitant]
     Active Substance: GLIMEPIRIDE

REACTIONS (8)
  - Neuralgia [None]
  - Pain in extremity [None]
  - Pain [None]
  - Muscular weakness [None]
  - Loss of personal independence in daily activities [None]
  - Dry eye [None]
  - Facial pain [None]
  - Tendon discomfort [None]

NARRATIVE: CASE EVENT DATE: 20170201
